FAERS Safety Report 6960505-6 (Version None)
Quarter: 2010Q3

REPORT INFORMATION
  Report Type: 
  Country: None (occurrence: None)
  Receive Date: 20100901
  Receipt Date: 20100820
  Transmission Date: 20110219
  Serious: No
  Sender: FDA-Public Use
  Company Number: US-B.I. PHARMACEUTICALS,INC./RIDGEFIELD-2010-BP-09449BP

PATIENT
  Age: 77 Year
  Sex: Male

DRUGS (6)
  1. AGGRENOX [Suspect]
     Indication: RUPTURED CEREBRAL ANEURYSM
     Route: 048
     Dates: start: 20040101
  2. PANTOPRAZOLE [Concomitant]
     Indication: HIATUS HERNIA
  3. LISINOPRIL [Concomitant]
     Indication: HYPERTENSION
  4. METOPROLOL TARTRATE [Concomitant]
     Indication: HYPERTENSION
  5. FUROSEMIDE [Concomitant]
     Indication: HYPERTENSION
  6. POTASSIUM [Concomitant]
     Indication: HYPERTENSION

REACTIONS (5)
  - ABDOMINAL PAIN UPPER [None]
  - DECREASED APPETITE [None]
  - DIARRHOEA [None]
  - DYSURIA [None]
  - WEIGHT DECREASED [None]
